FAERS Safety Report 22206516 (Version 1)
Quarter: 2023Q2

REPORT INFORMATION
  Report Type: Spontaneous
  Country: US (occurrence: None)
  Receive Date: 20230412
  Receipt Date: 20230412
  Transmission Date: 20230721
  Serious: Yes (Other)
  Sender: FDA-Public Use
  Company Number: None

PATIENT
  Age: 38 Year
  Sex: Female
  Weight: 50.4 kg

DRUGS (2)
  1. MELOXICAM [Suspect]
     Active Substance: MELOXICAM
     Indication: Foot deformity
     Dosage: FREQUENCY : DAILY;?
     Route: 048
     Dates: start: 20230330
  2. MELOXICAM [Suspect]
     Active Substance: MELOXICAM
     Indication: Inflammation

REACTIONS (3)
  - Photosensitivity reaction [None]
  - Rash macular [None]
  - Feeling hot [None]

NARRATIVE: CASE EVENT DATE: 20230412
